FAERS Safety Report 10963541 (Version 1)
Quarter: 2015Q1

REPORT INFORMATION
  Report Type: Spontaneous
  Country: US (occurrence: None)
  Receive Date: 20150226
  Receipt Date: 20150226
  Transmission Date: 20150721
  Serious: Yes (Other)
  Sender: FDA-Public Use
  Company Number: TPA2012A03080

PATIENT
  Age: 84 Year
  Sex: Male
  Weight: 99.79 kg

DRUGS (4)
  1. GLYCOPYRROLATE (GLYCOPYRRONIUM) [Concomitant]
  2. LINAGLIPTIN (ALL OTHER THERAPEUTIC PRODUCTS) [Concomitant]
  3. ACTOS [Suspect]
     Active Substance: PIOGLITAZONE HYDROCHLORIDE
     Indication: TYPE 2 DIABETES MELLITUS
     Dates: start: 20050808, end: 201109
  4. ONGLYZA [Concomitant]
     Active Substance: SAXAGLIPTIN HYDROCHLORIDE

REACTIONS (2)
  - Blood urine present [None]
  - Bladder cancer [None]

NARRATIVE: CASE EVENT DATE: 20110919
